FAERS Safety Report 8840027 (Version 1)
Quarter: 2012Q4

REPORT INFORMATION
  Report Type: 
  Country: US (occurrence: US)
  Receive Date: 20121015
  Receipt Date: 20121015
  Transmission Date: 20130627
  Serious: No
  Sender: FDA-Public Use
  Company Number: US-PFIZER INC-2012254758

PATIENT
  Sex: Male

DRUGS (2)
  1. ALPRAZOLAM [Suspect]
     Dosage: 8 mg, UNK
  2. ALPRAZOLAM [Suspect]
     Dosage: 4 mg, UNK

REACTIONS (3)
  - Diarrhoea [Unknown]
  - Irritability [Unknown]
  - Tinnitus [Unknown]
